FAERS Safety Report 15056383 (Version 2)
Quarter: 2018Q3

REPORT INFORMATION
  Report Type: Report from Study
  Country: US (occurrence: US)
  Receive Date: 20180622
  Receipt Date: 20180622
  Transmission Date: 20181010
  Serious: Yes (Hospitalization)
  Sender: FDA-Public Use
  Company Number: US-BIOVERATIV-2018BV000346

PATIENT
  Age: 42 Year
  Sex: Female
  Weight: 90.3 kg

DRUGS (12)
  1. BIVV009 [Suspect]
     Active Substance: SUTIMLIMAB
     Dosage: DAY 21?500 ML/HR
     Route: 065
     Dates: start: 20180405
  2. BIVV009 [Suspect]
     Active Substance: SUTIMLIMAB
     Dosage: DAY 35?500 ML/HR
     Route: 065
     Dates: start: 20180418
  3. TRAZODONE [Concomitant]
     Active Substance: TRAZODONE HYDROCHLORIDE
     Dosage: DAILY
     Route: 048
  4. BIVV009 [Suspect]
     Active Substance: SUTIMLIMAB
     Dosage: DAY 7?500 ML/HR
     Route: 065
     Dates: start: 20180323
  5. SERTRALINE [Concomitant]
     Active Substance: SERTRALINE HYDROCHLORIDE
     Indication: ANXIETY
     Dosage: DAILY
     Route: 048
  6. ASA [Concomitant]
     Active Substance: ASPIRIN
     Indication: THROMBOCYTOSIS
     Dosage: DAILY
     Route: 048
     Dates: start: 20180531
  7. BIVV009 [Suspect]
     Active Substance: SUTIMLIMAB
     Indication: IMMUNE THROMBOCYTOPENIC PURPURA
     Dosage: DAY 0?500 ML/HR?TOTAL DOSE 5.5 G
     Route: 065
     Dates: start: 20180315
  8. BIVV009 [Suspect]
     Active Substance: SUTIMLIMAB
     Route: 065
     Dates: end: 20180524
  9. HEPARIN [Concomitant]
     Active Substance: HEPARIN SODIUM
     Indication: THROMBOSIS
     Dosage: 1000 U/HR
     Route: 065
     Dates: start: 20180531, end: 20180601
  10. QUETIAPINE. [Concomitant]
     Active Substance: QUETIAPINE
     Indication: ANXIETY
     Dosage: DAILY
     Route: 048
  11. TRAZODONE [Concomitant]
     Active Substance: TRAZODONE HYDROCHLORIDE
     Indication: ANXIETY
     Dosage: DAILY
     Route: 048
  12. ACETAMINOPHEN. [Concomitant]
     Active Substance: ACETAMINOPHEN
     Indication: PAIN
     Dosage: AS NEEDED
     Route: 048

REACTIONS (7)
  - Dizziness [None]
  - Asthenia [None]
  - Feeling abnormal [None]
  - Migraine [None]
  - Sensory disturbance [Recovered/Resolved]
  - Platelet count increased [None]
  - Headache [None]

NARRATIVE: CASE EVENT DATE: 20180531
